FAERS Safety Report 7632693-X (Version None)
Quarter: 2011Q3

REPORT INFORMATION
  Report Type: 
  Country: None (occurrence: None)
  Receive Date: 20110725
  Receipt Date: 20110105
  Transmission Date: 20111222
  Serious: Yes (Other)
  Sender: FDA-Public Use
  Company Number: US-BRISTOL-MYERS SQUIBB COMPANY-15418825

PATIENT
  Age: 61 Year
  Sex: Male

DRUGS (6)
  1. WARFARIN SODIUM [Suspect]
     Indication: CATHETER PLACEMENT
     Dosage: 1 1/2 TABS/DAY.
     Dates: start: 20100701
  2. FUROSEMIDE [Concomitant]
  3. CLONAZEPAM [Concomitant]
  4. TRAZODONE HCL [Concomitant]
  5. CARVEDILOL [Concomitant]
  6. LITHIUM CARBONATE [Concomitant]

REACTIONS (1)
  - INTERNATIONAL NORMALISED RATIO FLUCTUATION [None]
